FAERS Safety Report 21572077 (Version 3)
Quarter: 2023Q1

REPORT INFORMATION
  Report Type: Report from Study
  Country: US (occurrence: US)
  Receive Date: 20221109
  Receipt Date: 20230214
  Transmission Date: 20230418
  Serious: Yes (Hospitalization, Other)
  Sender: FDA-Public Use
  Company Number: US-UCBSA-2022060557

PATIENT
  Sex: Female

DRUGS (3)
  1. CERTOLIZUMAB PEGOL [Suspect]
     Active Substance: CERTOLIZUMAB PEGOL
     Indication: Psoriasis
     Dosage: 200 MILLIGRAM, EV 2 WEEKS(QOW)
     Route: 058
     Dates: start: 20220930
  2. PEPCID [ALUMINIUM HYDROXIDE;MAGNESIUM TRISILICATE;SODIUM ALGINATE] [Concomitant]
     Indication: Pruritus
  3. ALLEGRA [Concomitant]
     Active Substance: FEXOFENADINE HYDROCHLORIDE
     Indication: Pruritus

REACTIONS (4)
  - Liver injury [Recovering/Resolving]
  - Oesophageal spasm [Not Recovered/Not Resolved]
  - Atrial fibrillation [Recovered/Resolved]
  - Pruritus [Recovering/Resolving]

NARRATIVE: CASE EVENT DATE: 20220101
